FAERS Safety Report 24137932 (Version 1)
Quarter: 2024Q3

REPORT INFORMATION
  Report Type: Spontaneous
  Country: US (occurrence: None)
  Receive Date: 20240725
  Receipt Date: 20240725
  Transmission Date: 20241016
  Serious: Yes (Hospitalization)
  Sender: Public
  Company Number: None

PATIENT
  Age: 58 Year
  Sex: Male
  Weight: 80 kg

DRUGS (1)
  1. VYXEOS [Suspect]
     Active Substance: CYTARABINE\DAUNORUBICIN
     Dates: end: 20240610

REACTIONS (4)
  - Platelet count decreased [None]
  - Anaemia [None]
  - Pneumonia [None]
  - Febrile neutropenia [None]

NARRATIVE: CASE EVENT DATE: 20240608
